FAERS Safety Report 18509849 (Version 2)
Quarter: 2020Q4

REPORT INFORMATION
  Report Type: Report from Study
  Country: US (occurrence: US)
  Receive Date: 20201117
  Receipt Date: 20201214
  Transmission Date: 20210114
  Serious: Yes (Hospitalization, Other)
  Sender: FDA-Public Use
  Company Number: US-ASTELLAS-2020US017829

PATIENT
  Sex: Female

DRUGS (1)
  1. ASP2215 [Suspect]
     Active Substance: GILTERITINIB
     Indication: ACUTE MYELOID LEUKAEMIA
     Route: 048
     Dates: start: 20200226

REACTIONS (5)
  - Pneumonia [Unknown]
  - Illness [Unknown]
  - Loss of personal independence in daily activities [Unknown]
  - Febrile neutropenia [Unknown]
  - Drug ineffective [Unknown]
